FAERS Safety Report 17187886 (Version 4)
Quarter: 2022Q1

REPORT INFORMATION
  Report Type: Spontaneous
  Country: PL (occurrence: PL)
  Receive Date: 20191221
  Receipt Date: 20220315
  Transmission Date: 20220424
  Serious: Yes (Hospitalization, Other)
  Sender: FDA-Public Use
  Company Number: PL-SA-2017SA078294

PATIENT
  Age: 73 Year
  Sex: Female

DRUGS (12)
  1. ATORVASTATIN [Suspect]
     Active Substance: ATORVASTATIN
     Indication: Dyslipidaemia
     Dosage: UNK UNK,UNK
     Route: 048
  2. ATORVASTATIN [Suspect]
     Active Substance: ATORVASTATIN
     Dosage: UNK UNK,UNK TILL 20-MAR-2017
     Route: 048
  3. BISOPROLOL [Suspect]
     Active Substance: BISOPROLOL
     Indication: Atrial fibrillation
     Dosage: UNK UNK,UNK
     Route: 048
  4. BISOPROLOL [Suspect]
     Active Substance: BISOPROLOL
     Indication: Hypertension
     Dosage: UNK UNK,UNK
     Route: 048
     Dates: start: 20170323
  5. RAMIPRIL [Suspect]
     Active Substance: RAMIPRIL
     Indication: Hypertension
     Dosage: UNK UNK,UNK
     Route: 048
  6. RAMIPRIL [Suspect]
     Active Substance: RAMIPRIL
     Dosage: UNK UNK,UNK TILL 29-MAR-2017
     Route: 048
  7. ASPIRIN [Suspect]
     Active Substance: ASPIRIN
     Indication: Prophylaxis
     Dosage: UNK UNK,UNK
     Route: 048
  8. GLICLAZIDE [Suspect]
     Active Substance: GLICLAZIDE
     Indication: Diabetes mellitus
     Dosage: UNK
     Route: 048
     Dates: start: 20161230
  9. GLICLAZIDE [Suspect]
     Active Substance: GLICLAZIDE
     Dosage: UNK UNK,UNK
     Route: 048
     Dates: start: 20170323
  10. METFORMIN HYDROCHLORIDE [Suspect]
     Active Substance: METFORMIN HYDROCHLORIDE
     Indication: Diabetes mellitus
     Dosage: UNK UNK,UNK
     Route: 048
  11. TORSEMIDE [Suspect]
     Active Substance: TORSEMIDE
     Indication: Hypertension
     Dosage: UNK UNK,UNK
     Route: 048
     Dates: start: 20161230
  12. FURAZIDINE [Concomitant]
     Active Substance: FURAZIDINE
     Indication: Urinary tract infection
     Dosage: UNK UNK,UNK
     Route: 048
     Dates: start: 20161230

REACTIONS (2)
  - Cardiac failure [Recovered/Resolved]
  - Hypertension [Recovered/Resolved]

NARRATIVE: CASE EVENT DATE: 20170223
